FAERS Safety Report 11938315 (Version 1)
Quarter: 2016Q1

REPORT INFORMATION
  Report Type: Spontaneous
  Country: US (occurrence: None)
  Receive Date: 20160120
  Receipt Date: 20160120
  Transmission Date: 20160526
  Serious: Yes (Hospitalization)
  Sender: FDA-Public Use
  Company Number: None

PATIENT
  Age: 70 Year
  Sex: Male
  Weight: 96.6 kg

DRUGS (19)
  1. DACLATASVIR 60MG [Suspect]
     Active Substance: DACLATASVIR
     Indication: HEPATITIS C
     Route: 048
     Dates: start: 20150914, end: 20151208
  2. AMBIEN [Concomitant]
     Active Substance: ZOLPIDEM TARTRATE
  3. SOFOSBUVIR 400MG [Suspect]
     Active Substance: SOFOSBUVIR
     Indication: HEPATITIS C
     Dosage: 400/90 MG ?1X DAILY?ORAL
     Dates: start: 20150914, end: 20151208
  4. DAPTOMYCIN. [Concomitant]
     Active Substance: DAPTOMYCIN
  5. COSOPT [Concomitant]
     Active Substance: DORZOLAMIDE HYDROCHLORIDE\TIMOLOL MALEATE
  6. PHOSLO [Concomitant]
     Active Substance: CALCIUM ACETATE
  7. ACYCLOVIR. [Concomitant]
     Active Substance: ACYCLOVIR
  8. LORATADINE. [Concomitant]
     Active Substance: LORATADINE
  9. MULTIVITAMIN [Concomitant]
     Active Substance: VITAMINS
  10. PRED FORTE [Concomitant]
     Active Substance: PREDNISOLONE ACETATE
  11. ATROPINE. [Concomitant]
     Active Substance: ATROPINE
  12. ZANTAC [Concomitant]
     Active Substance: RANITIDINE HYDROCHLORIDE
  13. METRONIDAZOLE. [Concomitant]
     Active Substance: METRONIDAZOLE
  14. CHLORAMPHENICOL W/DEXAMETHASONE [Concomitant]
  15. FLORINEF ACETATE [Concomitant]
     Active Substance: FLUDROCORTISONE ACETATE
  16. GABAPENTIN. [Concomitant]
     Active Substance: GABAPENTIN
  17. IBRUTINIB [Concomitant]
     Active Substance: IBRUTINIB
  18. CEFEPIME [Concomitant]
     Active Substance: CEFEPIME HYDROCHLORIDE
  19. OXYCODONE [Concomitant]
     Active Substance: OXYCODONE

REACTIONS (10)
  - Memory impairment [None]
  - Dehydration [None]
  - Hyperphosphataemia [None]
  - Confusional state [None]
  - Balance disorder [None]
  - Parotid gland enlargement [None]
  - Sinus bradycardia [None]
  - Chronotropic incompetence [None]
  - Acute kidney injury [None]
  - Hyperkalaemia [None]

NARRATIVE: CASE EVENT DATE: 20151113
